FAERS Safety Report 4452944-2 (Version None)
Quarter: 2004Q3

REPORT INFORMATION
  Report Type: 
  Country: None (occurrence: None)
  Receive Date: 20040916
  Receipt Date: 20040720
  Transmission Date: 20050211
  Serious: Yes (Other)
  Sender: FDA-Public Use
  Company Number: 2004061315

PATIENT
  Age: 1 Day
  Sex: Male
  Weight: 0.829 kg

DRUGS (4)
  1. VIRACEPT [Suspect]
     Indication: HIV TEST POSITIVE
     Dosage: 2500 MG (1 D), ORAL
     Route: 048
     Dates: start: 20040210
  2. ZIDOVUDINE W/LAMIVUDINE (LAMIVUDINE, ZIDOVUDINE) [Suspect]
     Indication: HIV TEST POSITIVE
     Dosage: 900 MG (450 MG, 2 IN 1 D), ORAL
     Route: 048
  3. EFAVIRENZ (EFAVIRENZ) [Suspect]
     Indication: HIV TEST POSITIVE
     Dosage: 600 MG (1 D), ORAL
     Route: 048
     Dates: end: 20040209
  4. ZIDOVUDINE [Suspect]
     Indication: HIV TEST POSITIVE
     Dosage: 100 MG (100 MG, 1 D) INTRAVENOUS
     Route: 042
     Dates: start: 20040707, end: 20040707

REACTIONS (3)
  - DRUG EXPOSURE DURING PREGNANCY [None]
  - PREMATURE BABY [None]
  - SMALL FOR DATES BABY [None]
